FAERS Safety Report 10878773 (Version 1)
Quarter: 2015Q1

REPORT INFORMATION
  Report Type: Spontaneous
  Country: NO (occurrence: NO)
  Receive Date: 20150302
  Receipt Date: 20150302
  Transmission Date: 20150721
  Serious: Yes (Death)
  Sender: FDA-Public Use
  Company Number: PHHY2015NO023823

PATIENT
  Age: 35 Year
  Sex: Male

DRUGS (4)
  1. LEPONEX [Suspect]
     Active Substance: CLOZAPINE
     Dosage: 800 MG, QD
     Route: 048
     Dates: start: 20150121, end: 20150129
  2. LEPONEX [Suspect]
     Active Substance: CLOZAPINE
     Indication: SCHIZOPHRENIFORM DISORDER
     Dosage: 100 MG, 8QD
     Route: 048
     Dates: start: 20140114
  3. LEPONEX [Suspect]
     Active Substance: CLOZAPINE
     Dosage: 600 MG, QD
     Route: 048
  4. LEPONEX [Suspect]
     Active Substance: CLOZAPINE
     Dosage: 700 MG, QD
     Route: 048

REACTIONS (5)
  - Sepsis [Fatal]
  - Dyskinesia [Not Recovered/Not Resolved]
  - Agranulocytosis [Not Recovered/Not Resolved]
  - Ataxia [Not Recovered/Not Resolved]
  - Salivary hypersecretion [Not Recovered/Not Resolved]

NARRATIVE: CASE EVENT DATE: 20150129
